FAERS Safety Report 7178765-8 (Version None)
Quarter: 2010Q4

REPORT INFORMATION
  Report Type: 
  Country: None (occurrence: None)
  Receive Date: 20101221
  Receipt Date: 20101213
  Transmission Date: 20110411
  Serious: Yes (Other)
  Sender: FDA-Public Use
  Company Number: US-US-EMD SERONO, INC.-7005521

PATIENT
  Sex: Female

DRUGS (3)
  1. REBIF [Suspect]
     Indication: PRODUCT USED FOR UNKNOWN INDICATION
     Route: 058
     Dates: start: 20100507, end: 20100501
  2. REBIF [Suspect]
     Dates: start: 20100101, end: 20100101
  3. REBIF [Suspect]
     Dates: start: 20101210, end: 20101201

REACTIONS (5)
  - DEPRESSION [None]
  - DIZZINESS [None]
  - FEELINGS OF WORTHLESSNESS [None]
  - MOOD SWINGS [None]
  - NASOPHARYNGITIS [None]
